FAERS Safety Report 10030063 (Version 2)
Quarter: 2014Q1

REPORT INFORMATION
  Report Type: Spontaneous
  Country: US (occurrence: US)
  Receive Date: 20140323
  Receipt Date: 20140323
  Transmission Date: 20141002
  Serious: No
  Sender: FDA-Public Use
  Company Number: US-ALLERGAN-1304311US

PATIENT
  Age: 50 Year
  Sex: Female

DRUGS (4)
  1. LATISSE 0.03% [Suspect]
     Indication: GROWTH OF EYELASHES
     Dosage: 2 GTT, QHS
     Route: 061
     Dates: start: 201211
  2. LATISSE 0.03% [Suspect]
     Dosage: 2 GTT, QHS
     Route: 061
     Dates: start: 201211
  3. LATISSE 0.03% [Suspect]
     Dosage: 2 GTT, UNK
     Route: 061
  4. EFEXOR                             /01233802/ [Concomitant]
     Indication: DEPRESSION
     Dosage: 225 MG, QD
     Route: 048
     Dates: start: 2011

REACTIONS (4)
  - Inappropriate schedule of drug administration [Unknown]
  - Hair texture abnormal [Unknown]
  - Abnormal sensation in eye [Unknown]
  - Therapeutic response decreased [Unknown]
